FAERS Safety Report 7783210-5 (Version None)
Quarter: 2011Q3

REPORT INFORMATION
  Report Type: 
  Country: None (occurrence: None)
  Receive Date: 20110928
  Receipt Date: 20110920
  Transmission Date: 20111222
  Serious: Yes (Hospitalization)
  Sender: FDA-Public Use
  Company Number: CA-AMGEN-CANSP2011048741

PATIENT
  Sex: Female

DRUGS (6)
  1. CRESTOR [Concomitant]
     Indication: BLOOD CHOLESTEROL INCREASED
     Dosage: 10 MG, QD
     Route: 048
  2. ARANESP [Suspect]
     Indication: TRANSPLANT FAILURE
     Dosage: 80 MG, 2 TIMES/WK
     Route: 058
  3. REACTINE                           /00884302/ [Concomitant]
     Indication: HYPERSENSITIVITY
     Dosage: 10 MG, QD
     Route: 048
  4. VITAMIN B COMPLEX CAP [Concomitant]
     Route: 048
  5. VITAMIN C                          /00008001/ [Concomitant]
     Route: 048
  6. CARBAMAZEPINE [Concomitant]
     Indication: CONVULSION
     Dosage: 40 MG, QD
     Route: 048

REACTIONS (1)
  - APLASIA PURE RED CELL [None]
